FAERS Safety Report 17242801 (Version 1)
Quarter: 2020Q1

REPORT INFORMATION
  Report Type: Report from Study
  Country: CA (occurrence: CA)
  Receive Date: 20200107
  Receipt Date: 20200107
  Transmission Date: 20200409
  Serious: Yes (Other)
  Sender: FDA-Public Use
  Company Number: CA-PFIZER INC-2020001387

PATIENT
  Age: 69 Year
  Sex: Male

DRUGS (9)
  1. COSENTYX [Suspect]
     Active Substance: SECUKINUMAB
     Indication: PSORIASIS
     Dosage: 300 MG, MONTHLY
     Route: 058
  2. NEORAL [Suspect]
     Active Substance: CYCLOSPORINE
     Route: 065
  3. ACITRETIN. [Concomitant]
     Active Substance: ACITRETIN
     Route: 065
  4. COSENTYX [Suspect]
     Active Substance: SECUKINUMAB
     Dosage: 300 MG, MONTHLY
     Route: 058
  5. COSENTYX [Suspect]
     Active Substance: SECUKINUMAB
     Dosage: 300 MG, MONTHLY
     Route: 058
  6. HUMIRA [Concomitant]
     Active Substance: ADALIMUMAB
     Route: 058
  7. METHOTREXATE SODIUM. [Suspect]
     Active Substance: METHOTREXATE SODIUM
     Route: 065
  8. COSENTYX [Suspect]
     Active Substance: SECUKINUMAB
     Dosage: 300 MG, MONTHLY
     Route: 058
  9. COSENTYX [Suspect]
     Active Substance: SECUKINUMAB
     Indication: PSORIASIS
     Dosage: 300 MG, MONTHLY
     Route: 058

REACTIONS (6)
  - Inappropriate schedule of product administration [Recovered/Resolved]
  - Macule [Recovered/Resolved]
  - Pruritus [Recovered/Resolved]
  - Contusion [Recovered/Resolved]
  - Cerebrovascular accident [Recovered/Resolved]
  - Memory impairment [Recovered/Resolved]
